FAERS Safety Report 5804441-7 (Version None)
Quarter: 2008Q3

REPORT INFORMATION
  Report Type: 
  Country: None (occurrence: None)
  Receive Date: 20080709
  Receipt Date: 20080702
  Transmission Date: 20090109
  Serious: Yes (Hospitalization)
  Sender: FDA-Public Use
  Company Number: A0579073A

PATIENT
  Sex: Male

DRUGS (1)
  1. TAGAMET [Suspect]
     Indication: DRUG USE FOR UNKNOWN INDICATION
     Route: 065

REACTIONS (9)
  - BREAST FIBROSIS [None]
  - BREAST SWELLING [None]
  - BREAST TENDERNESS [None]
  - FLAT CHEST [None]
  - FLUID RETENTION [None]
  - GYNAECOMASTIA [None]
  - MASS [None]
  - PAIN [None]
  - SCAR [None]
